FAERS Safety Report 17354755 (Version 1)
Quarter: 2020Q1

REPORT INFORMATION
  Report Type: Spontaneous
  Country: JP (occurrence: JP)
  Receive Date: 20200131
  Receipt Date: 20200131
  Transmission Date: 20200409
  Serious: Yes (Hospitalization, Other)
  Sender: FDA-Public Use
  Company Number: JP-009507513-2001JPN011131

PATIENT
  Age: 58 Year
  Sex: Male

DRUGS (13)
  1. HYPEN [ETODOLAC] [Suspect]
     Active Substance: ETODOLAC
     Indication: PAIN
     Dosage: 200 MILLIGRAM, Q12H
     Route: 048
     Dates: start: 201407, end: 20140819
  2. CARBOCYSTEINE [Suspect]
     Active Substance: CARBOCYSTEINE
     Dosage: UNK
     Route: 048
  3. EQUA [Concomitant]
     Active Substance: VILDAGLIPTIN
     Dosage: UNK
  4. LOXOPROFEN SODIUM [Concomitant]
     Active Substance: LOXOPROFEN SODIUM
     Dosage: UNK
  5. LYRICA [Suspect]
     Active Substance: PREGABALIN
     Indication: DIABETIC NEUROPATHY
     Dosage: UNK
     Route: 048
  6. MECOBALAMIN [Suspect]
     Active Substance: METHYLCOBALAMIN
     Indication: DIABETIC NEUROPATHY
     Dosage: UNK
     Route: 065
  7. GLACTIV [Suspect]
     Active Substance: SITAGLIPTIN
     Indication: DIABETIC NEUROPATHY
     Dosage: UNK
     Route: 048
  8. VOGLIBOSE [Concomitant]
     Active Substance: VOGLIBOSE
     Dosage: UNK
  9. TEGRETOL [Suspect]
     Active Substance: CARBAMAZEPINE
     Indication: DIABETIC NEUROPATHY
     Dosage: 1 DF, Q8H
     Route: 048
     Dates: start: 20140627, end: 20140822
  10. METGLUCO [Suspect]
     Active Substance: METFORMIN HYDROCHLORIDE
     Indication: DIABETIC NEUROPATHY
     Dosage: UNK
     Route: 048
  11. JANUVIA [Concomitant]
     Active Substance: SITAGLIPTIN PHOSPHATE
     Dosage: UNK (ORAL DRUG UNSPECIFIED FORM)
  12. GLIMEPIRIDE. [Concomitant]
     Active Substance: GLIMEPIRIDE
     Dosage: UNK
  13. GASLON [Concomitant]
     Active Substance: IRSOGLADINE MALEATE
     Dosage: UNK (ORAL DRUG UNSPECIFIED FORM)

REACTIONS (6)
  - Papillary cystadenoma lymphomatosum [Unknown]
  - Induration [Unknown]
  - Rash [Not Recovered/Not Resolved]
  - Spinal stenosis [Unknown]
  - Drug reaction with eosinophilia and systemic symptoms [Unknown]
  - Erythema multiforme [Recovered/Resolved]

NARRATIVE: CASE EVENT DATE: 20140730
